FAERS Safety Report 8609270-7 (Version None)
Quarter: 2012Q3

REPORT INFORMATION
  Report Type: 
  Country: None (occurrence: None)
  Receive Date: 20120821
  Receipt Date: 20120731
  Transmission Date: 20120928
  Serious: Yes (Other)
  Sender: FDA-Public Use
  Company Number: GXKR2012DE002458

PATIENT
  Age: 13 Year
  Sex: Male

DRUGS (1)
  1. OMEPRAZOLE [Suspect]
     Dosage: 10 MG, UNK
     Route: 048

REACTIONS (2)
  - DIARRHOEA [None]
  - SELF INJURIOUS BEHAVIOUR [None]
